FAERS Safety Report 19824356 (Version 1)
Quarter: 2021Q3

REPORT INFORMATION
  Report Type: Spontaneous
  Country: US (occurrence: US)
  Receive Date: 20210913
  Receipt Date: 20210913
  Transmission Date: 20211014
  Serious: No
  Sender: FDA-Public Use
  Company Number: US-SIGMAPHARM LABORATORIES, LLC-2021SIG00028

PATIENT
  Age: 36 Year
  Weight: 81.63 kg

DRUGS (5)
  1. ASENAPINE. [Suspect]
     Active Substance: ASENAPINE
     Indication: MAJOR DEPRESSION
     Dosage: 5 MG, 1X/DAY
     Route: 060
  2. COGENTIN [Concomitant]
     Active Substance: BENZTROPINE MESYLATE
     Dosage: UNK, AS NEEDED
  3. ZOLOFT [Concomitant]
     Active Substance: SERTRALINE HYDROCHLORIDE
  4. TRILEPTAL [Concomitant]
     Active Substance: OXCARBAZEPINE
  5. HALOPERIDOL. [Concomitant]
     Active Substance: HALOPERIDOL
     Dosage: 2 MG

REACTIONS (3)
  - Therapeutic product effect decreased [Recovered/Resolved]
  - Product substitution issue [Recovered/Resolved]
  - Product solubility abnormal [Recovered/Resolved]

NARRATIVE: CASE EVENT DATE: 202105
